FAERS Safety Report 8300626-9 (Version None)
Quarter: 2012Q2

REPORT INFORMATION
  Report Type: 
  Country: None (occurrence: None)
  Receive Date: 20120420
  Receipt Date: 20120413
  Transmission Date: 20120825
  Serious: Yes (Other)
  Sender: FDA-Public Use
  Company Number: PHHY2012CA028025

PATIENT
  Sex: Female

DRUGS (11)
  1. PREVACID [Concomitant]
     Dosage: 15 MG, UNK
  2. MULTI-VITAMINS [Concomitant]
     Dosage: 1 DF, QD
  3. BOOST [Concomitant]
  4. TOBI [Suspect]
     Indication: PSEUDOMONAS INFECTION
     Dosage: 56 MG, BID
     Dates: start: 20110726, end: 20111008
  5. VITAMIN E [Concomitant]
     Dosage: 100 U, BID
  6. CEPHALEXIN [Concomitant]
     Dosage: 1000 MG, TID
  7. VITAMIN D [Concomitant]
     Dosage: 800 U, QD
  8. ALESSE [Concomitant]
  9. ADVAIR DISKUS 100/50 [Concomitant]
     Dosage: 250 UG, BID
  10. NASONEX [Concomitant]
     Dosage: 2 DF, QD
  11. VENTOLIN DISKUS [Concomitant]

REACTIONS (1)
  - COUGH [None]
